FAERS Safety Report 8315875-3 (Version None)
Quarter: 2012Q2

REPORT INFORMATION
  Report Type: 
  Country: None (occurrence: None)
  Receive Date: 20120427
  Receipt Date: 20120417
  Transmission Date: 20120825
  Serious: Yes (Hospitalization)
  Sender: FDA-Public Use
  Company Number: US-BIOGENIDEC-2012BI010040

PATIENT
  Age: 72 Year
  Sex: Female

DRUGS (2)
  1. AVONEX [Suspect]
     Indication: MULTIPLE SCLEROSIS
     Route: 030
     Dates: start: 20020101, end: 20070201
  2. AVONEX [Suspect]
     Route: 030
     Dates: start: 20070301

REACTIONS (4)
  - FALL [None]
  - MENTAL IMPAIRMENT [None]
  - ANKLE FRACTURE [None]
  - LOWER LIMB FRACTURE [None]
